FAERS Safety Report 8906298 (Version 1)
Quarter: 2012Q4

REPORT INFORMATION
  Report Type: Spontaneous
  Country: US (occurrence: None)
  Receive Date: 20121106
  Receipt Date: 20121106
  Transmission Date: 20130627
  Serious: Yes (Other)
  Sender: FDA-Public Use
  Company Number: SAN_00509_2012

PATIENT
  Sex: Female

DRUGS (1)
  1. GLUMETZA [Suspect]
     Indication: TYPE 2 DIABETES MELLITUS
     Route: 048
     Dates: start: 201209, end: 201209

REACTIONS (1)
  - Drug hypersensitivity [None]
